FAERS Safety Report 20950096 (Version 1)
Quarter: 2022Q2

REPORT INFORMATION
  Report Type: Spontaneous
  Country: US (occurrence: None)
  Receive Date: 20220610
  Receipt Date: 20220610
  Transmission Date: 20220720
  Serious: Yes (Hospitalization)
  Sender: FDA-Public Use
  Company Number: None

PATIENT
  Age: 45 Year
  Sex: Female
  Weight: 63.9 kg

DRUGS (7)
  1. PAXLOVID [Suspect]
     Active Substance: NIRMATRELVIR\RITONAVIR
     Indication: COVID-19
     Dosage: FREQUENCY : TWICE A DAY;?
     Route: 048
     Dates: start: 20220521, end: 20220525
  2. SYMBICORT [Concomitant]
     Active Substance: BUDESONIDE\FORMOTEROL FUMARATE DIHYDRATE
  3. SINGULAIR [Concomitant]
     Active Substance: MONTELUKAST SODIUM
  4. PREDNISONE [Concomitant]
     Active Substance: PREDNISONE
  5. METOPROLOL [Concomitant]
     Active Substance: METOPROLOL
  6. LACTULOSE [Concomitant]
     Active Substance: LACTULOSE
  7. DIFLUCAN [Concomitant]
     Active Substance: FLUCONAZOLE

REACTIONS (6)
  - Arthralgia [None]
  - Electric shock sensation [None]
  - Paraesthesia [None]
  - Paraesthesia [None]
  - Autonomic nervous system imbalance [None]
  - Gait inability [None]

NARRATIVE: CASE EVENT DATE: 20220527
